FAERS Safety Report 8983234 (Version 1)
Quarter: 2012Q4

REPORT INFORMATION
  Report Type: 
  Country: US (occurrence: US)
  Receive Date: 20121224
  Receipt Date: 20121224
  Transmission Date: 20130627
  Serious: Yes (Other)
  Sender: FDA-Public Use
  Company Number: PHEH2012US025126

PATIENT
  Age: 29 Year
  Sex: Female

DRUGS (13)
  1. AFINITOR [Suspect]
     Indication: BRAIN NEOPLASM BENIGN
     Dosage: 10 mg, daily
     Route: 048
     Dates: start: 20110906
  2. CARBATOL [Concomitant]
  3. TOPIRAMATE [Concomitant]
  4. VALIUM [Concomitant]
  5. VITAMAN [Concomitant]
  6. METRONIDAZOLE [Concomitant]
  7. DOXYCYCLINE [Concomitant]
  8. LEVOXYL [Concomitant]
  9. FIBERCON [Concomitant]
  10. FERROUS SULPHATE [Concomitant]
  11. LORAZEPAM [Concomitant]
  12. NASONEX [Concomitant]
  13. ATELVIA [Concomitant]

REACTIONS (1)
  - Stress fracture [Unknown]
